FAERS Safety Report 19103796 (Version 1)
Quarter: 2021Q2

REPORT INFORMATION
  Report Type: Spontaneous
  Country: CA (occurrence: CA)
  Receive Date: 20210407
  Receipt Date: 20210407
  Transmission Date: 20210717
  Serious: Yes (Hospitalization)
  Sender: FDA-Public Use
  Company Number: CA-B.I. PHARMACEUTICALS,INC./RIDGEFIELD-2021-BI-094910

PATIENT
  Age: 62 Year
  Sex: Female
  Weight: 72 kg

DRUGS (10)
  1. SPIRIVA [Suspect]
     Active Substance: TIOTROPIUM BROMIDE MONOHYDRATE
     Indication: PRODUCT USED FOR UNKNOWN INDICATION
     Dosage: 2 DOSAGE FORM 1 IN 1 DAY
     Route: 055
  2. CIPRALEX [Concomitant]
     Active Substance: ESCITALOPRAM OXALATE
     Indication: PRODUCT USED FOR UNKNOWN INDICATION
  3. SALBUTAMOL SULFATE [Suspect]
     Active Substance: ALBUTEROL SULFATE
     Indication: PRODUCT USED FOR UNKNOWN INDICATION
     Route: 055
  4. ERGOCALCIFEROL. [Concomitant]
     Active Substance: ERGOCALCIFEROL
     Indication: PRODUCT USED FOR UNKNOWN INDICATION
  5. OMEPRAZOLE. [Concomitant]
     Active Substance: OMEPRAZOLE
     Indication: PRODUCT USED FOR UNKNOWN INDICATION
  6. BREO ELLIPTA [Suspect]
     Active Substance: FLUTICASONE FUROATE\VILANTEROL TRIFENATATE
     Indication: PRODUCT USED FOR UNKNOWN INDICATION
     Dosage: INHALATION, 1 DOSAGE FORM, 1 EVERY 1 DAY
     Route: 055
  7. TIOTROPIUM BROMIDE [Concomitant]
     Active Substance: TIOTROPIUM BROMIDE
     Indication: PRODUCT USED FOR UNKNOWN INDICATION
     Dosage: 2.0 DOSAGE FORMS, 1 EVERY 1 DAYS
     Route: 055
  8. NUCALA [Concomitant]
     Active Substance: MEPOLIZUMAB
     Indication: ASTHMA
     Route: 042
  9. BUDESONIDE;FORMOTEROL FUMARATE [Suspect]
     Active Substance: BUDESONIDE\FORMOTEROL FUMARATE
     Indication: PRODUCT USED FOR UNKNOWN INDICATION
     Dosage: 2 DOSAGE FORM 3 EVERY 1 DAY
     Route: 055
  10. ALVESCO [Suspect]
     Active Substance: CICLESONIDE
     Indication: PRODUCT USED FOR UNKNOWN INDICATION
     Dosage: AEROSOL, METEREDDOSE
     Route: 055

REACTIONS (13)
  - Asthma [Unknown]
  - Oropharyngeal pain [Unknown]
  - Bronchial secretion retention [Unknown]
  - Nasopharyngitis [Unknown]
  - Occupational problem environmental [Unknown]
  - Dyspnoea [Unknown]
  - Cardiomegaly [Unknown]
  - Eosinophilia [Unknown]
  - Blood count abnormal [Unknown]
  - Obstructive airways disorder [Unknown]
  - Sinus congestion [Unknown]
  - Therapeutic product effect incomplete [Unknown]
  - Wheezing [Unknown]
